FAERS Safety Report 8901622 (Version 1)
Quarter: 2012Q4

REPORT INFORMATION
  Report Type: Spontaneous
  Country: US (occurrence: None)
  Receive Date: 20121108
  Receipt Date: 20121108
  Transmission Date: 20130627
  Serious: Yes (Hospitalization)
  Sender: FDA-Public Use
  Company Number: None

PATIENT
  Age: 80 Year
  Sex: Female
  Weight: 56 kg

DRUGS (18)
  1. PRADAXA 75 MG BOEHRINGER INGELHEIM [Suspect]
     Indication: ATRIAL FIBRILLATION
     Dosage: About  2  months
150 mg   bid   po
     Route: 048
  2. ASPIRIN [Concomitant]
  3. LEXAPRO [Concomitant]
  4. IRON SULFATE [Concomitant]
  5. LASIX [Concomitant]
  6. MUCINEX [Concomitant]
  7. IMDUR [Concomitant]
  8. PRINIVIL [Concomitant]
  9. METOPROLOL [Concomitant]
  10. SINGULAIR [Concomitant]
  11. NITROGLYCERIN PRN [Concomitant]
  12. PROTONIX [Concomitant]
  13. PRAVACHOL [Concomitant]
  14. PHENERGAN [Concomitant]
  15. EVISTA [Concomitant]
  16. RANEXA [Concomitant]
  17. CARAFATE [Concomitant]
  18. AMBIEN [Concomitant]

REACTIONS (4)
  - Gastrointestinal haemorrhage [None]
  - Melaena [None]
  - Syncope [None]
  - Rectal haemorrhage [None]
